FAERS Safety Report 4881255-6 (Version None)
Quarter: 2005Q4

REPORT INFORMATION
  Report Type: 
  Country: None (occurrence: None)
  Receive Date: 20051212
  Receipt Date: 20051031
  Transmission Date: 20060501
  Serious: Yes (Hospitalization, Other)
  Sender: FDA-Public Use
  Company Number: 2005-02181

PATIENT
  Age: 72 Year
  Sex: Female
  Weight: 68.5 kg

DRUGS (7)
  1. VELCADE [Suspect]
     Indication: MULTIPLE MYELOMA
     Dosage: 1.30 MG/M2
     Dates: start: 20050815, end: 20051006
  2. NORVASC [Concomitant]
  3. COREG [Concomitant]
  4. LASIX [Concomitant]
  5. ANTIARRHYTHMICS, CLASS I AND III [Concomitant]
  6. OLMESARTAN MEDOXOMIL (OLMESARTAN MEDOXOMIL) [Concomitant]
  7. POTASSIUM CHLORIDE [Concomitant]

REACTIONS (5)
  - ANAEMIA [None]
  - CARDIAC FAILURE CONGESTIVE [None]
  - CARDIOMYOPATHY [None]
  - DYSPNOEA [None]
  - EJECTION FRACTION DECREASED [None]
